FAERS Safety Report 23593799 (Version 1)
Quarter: 2024Q1

REPORT INFORMATION
  Report Type: Report from Study
  Country: ZA (occurrence: ZA)
  Receive Date: 20240304
  Receipt Date: 20240304
  Transmission Date: 20240410
  Serious: Yes (Death)
  Sender: FDA-Public Use
  Company Number: ZA-BAYER-2024A031886

PATIENT
  Sex: Female

DRUGS (1)
  1. EYLEA [Suspect]
     Active Substance: AFLIBERCEPT
     Indication: Neovascular age-related macular degeneration
     Dosage: 1XVIAL FOR RIGHT EYE, SOLUTION FOR INJECTION, 40 MG/ML
     Dates: start: 20240229

REACTIONS (1)
  - Death [Fatal]
